FAERS Safety Report 10554199 (Version 2)
Quarter: 2014Q4

REPORT INFORMATION
  Report Type: Spontaneous
  Country: US (occurrence: US)
  Receive Date: 20141030
  Receipt Date: 20141030
  Transmission Date: 20150529
  Serious: Yes (Death, Hospitalization, Other)
  Sender: FDA-Public Use
  Company Number: US-GLAXOSMITHKLINE-A0838845A

PATIENT
  Age: 76 Year
  Sex: Male
  Weight: 54.5 kg

DRUGS (1)
  1. AVANDIA [Suspect]
     Active Substance: ROSIGLITAZONE MALEATE
     Indication: DIABETES MELLITUS
     Dosage: 2 MG, UNK
     Route: 048
     Dates: start: 20061030, end: 20070327

REACTIONS (2)
  - Cardiac arrest [Unknown]
  - Myocardial infarction [Fatal]

NARRATIVE: CASE EVENT DATE: 200704
